FAERS Safety Report 8259273 (Version 5)
Quarter: 2014Q3

REPORT INFORMATION
  Report Type: Spontaneous
  Country: US (occurrence: US)
  Receive Date: 20111122
  Receipt Date: 20140822
  Transmission Date: 20150326
  Serious: Yes (Other)
  Sender: FDA-Public Use
  Company Number: US-BAXTER-2011BH036515

PATIENT
  Age: 66 Year
  Sex: Female

DRUGS (2)
  1. INSULIN [Suspect]
     Active Substance: INSULIN NOS
     Indication: PRODUCT USED FOR UNKNOWN INDICATION
     Route: 041
  2. EXTRANEAL [Suspect]
     Active Substance: CALCIUM CHLORIDE\ICODEXTRIN\MAGNESIUM CHLORIDE\SODIUM CHLORIDE\SODIUM LACTATE
     Indication: PERITONEAL DIALYSIS
     Route: 033

REACTIONS (7)
  - Device interaction [Unknown]
  - Device interaction [Unknown]
  - Blood glucose increased [Unknown]
  - Hypoglycaemia [Unknown]
  - Kidney transplant rejection [Unknown]
  - Blood glucose abnormal [Unknown]
  - Coma [Not Recovered/Not Resolved]

NARRATIVE: CASE EVENT DATE: 2011
